FAERS Safety Report 20846680 (Version 8)
Quarter: 2022Q3

REPORT INFORMATION
  Report Type: Report from Study
  Country: JP (occurrence: JP)
  Receive Date: 20220519
  Receipt Date: 20220922
  Transmission Date: 20221027
  Serious: Yes (Other)
  Sender: FDA-Public Use
  Company Number: JP-TAKEDA-2022TJP048853

PATIENT
  Age: 67 Year
  Sex: Male

DRUGS (10)
  1. ANTIHEMOPHILIC FACTOR, PEGYLATED (MW 20000) HUMAN SEQUENCE RECOMBINANT [Suspect]
     Active Substance: ANTIHEMOPHILIC FACTOR, PEGYLATED (MW 20000) HUMAN SEQUENCE RECOMBINANT
     Indication: Factor VIII deficiency
     Dosage: 3000 INTERNATIONAL UNIT, 2/WEEK
     Route: 042
     Dates: start: 20220125
  2. ANTIHEMOPHILIC FACTOR, PEGYLATED (MW 20000) HUMAN SEQUENCE RECOMBINANT [Suspect]
     Active Substance: ANTIHEMOPHILIC FACTOR, PEGYLATED (MW 20000) HUMAN SEQUENCE RECOMBINANT
     Indication: Factor VIII deficiency
     Dosage: 3000 INTERNATIONAL UNIT, 2/WEEK
     Route: 042
     Dates: start: 20220125
  3. ANTIHEMOPHILIC FACTOR, PEGYLATED (MW 20000) HUMAN SEQUENCE RECOMBINANT [Suspect]
     Active Substance: ANTIHEMOPHILIC FACTOR, PEGYLATED (MW 20000) HUMAN SEQUENCE RECOMBINANT
     Indication: Factor VIII deficiency
     Dosage: 3000 INTERNATIONAL UNIT, 2/WEEK
     Route: 042
     Dates: start: 20220125
  4. ADVATE [Suspect]
     Active Substance: ANTIHEMOPHILIC FACTOR, HUMAN RECOMBINANT
     Indication: Factor VIII deficiency
     Dosage: 2000 INTERNATIONAL UNIT, QOD
     Route: 042
  5. ADVATE [Suspect]
     Active Substance: ANTIHEMOPHILIC FACTOR, HUMAN RECOMBINANT
     Indication: Factor VIII deficiency
     Dosage: 2000 INTERNATIONAL UNIT, QOD
     Route: 042
  6. ADVATE [Suspect]
     Active Substance: ANTIHEMOPHILIC FACTOR, HUMAN RECOMBINANT
     Indication: Factor VIII deficiency
     Dosage: 2000 INTERNATIONAL UNIT, QOD
     Route: 042
  7. MODERNA COVID-19 VACCINE [Suspect]
     Active Substance: ELASOMERAN
     Indication: COVID-19 immunisation
     Dosage: 1 DOSAGE FORM
     Route: 065
  8. COMIRNATY [Concomitant]
     Active Substance: TOZINAMERAN
     Indication: COVID-19 immunisation
     Dosage: 1 DOSAGE FORM, FIRST TIME
     Route: 065
  9. COMIRNATY [Concomitant]
     Active Substance: TOZINAMERAN
     Dosage: 1 DOSAGE FORM, SECOND TIME
     Route: 065
  10. Covid-19 vaccine [Concomitant]
     Indication: COVID-19 immunisation
     Dosage: 1 DOSAGE FORM, FOURTH TIME
     Route: 065
     Dates: start: 20220807, end: 20220807

REACTIONS (15)
  - Haemorrhage subcutaneous [Unknown]
  - Puncture site haemorrhage [Unknown]
  - Hepatitis B [Unknown]
  - Fatigue [Unknown]
  - Anxiety [Unknown]
  - Arthralgia [Recovered/Resolved]
  - Osteoarthritis [Unknown]
  - Complication associated with device [Recovered/Resolved]
  - Injection site pain [Unknown]
  - Pyrexia [Unknown]
  - Gait disturbance [Unknown]
  - Injection site induration [Unknown]
  - Pyrexia [Recovered/Resolved]
  - Puncture site swelling [Unknown]
  - Back pain [Unknown]

NARRATIVE: CASE EVENT DATE: 20220807
